FAERS Safety Report 9357897 (Version 2)
Quarter: 2013Q3

REPORT INFORMATION
  Report Type: Spontaneous
  Country: FR (occurrence: FR)
  Receive Date: 20130620
  Receipt Date: 20130701
  Transmission Date: 20140515
  Serious: Yes (Other)
  Sender: FDA-Public Use
  Company Number: FR-BRISTOL-MYERS SQUIBB COMPANY-19004878

PATIENT
  Age: 10 Year
  Sex: Female

DRUGS (18)
  1. ETOPOPHOS [Suspect]
     Indication: EWING^S SARCOMA
     Dosage: 1ST:16-18JAN13?2ND:06-08FEB13?3RD:28FEB-02MAR13
     Dates: start: 20130228, end: 20130302
  2. HOLOXAN [Suspect]
     Indication: EWING^S SARCOMA
     Dosage: 1ST:16-18JAN13?2ND:06-08FEB13?3RD:28FEB-02MAR13
     Dates: start: 20130228, end: 20130302
  3. VINCRISTINE SULFATE [Suspect]
     Indication: EWING^S SARCOMA
     Dosage: 0.1%(1MG/1ML) INJECTABLE SOLUTION.?1ST:16-18JAN13?2ND:06-08FEB13?3RD:28FEB-02MAR13
     Dates: start: 20130228, end: 20130228
  4. DOXORUBICIN HCL [Suspect]
     Indication: EWING^S SARCOMA
     Dosage: 1ST:16-18JAN13?2ND:06-08FEB13?3RD:28FEB-02MAR13
     Dates: start: 20130228, end: 20130302
  5. LYRICA [Concomitant]
     Route: 048
     Dates: start: 201301
  6. PERFALGAN [Concomitant]
     Route: 042
     Dates: start: 20130308, end: 20130320
  7. BACTRIM [Concomitant]
     Route: 048
     Dates: start: 201301
  8. MORPHINE [Concomitant]
  9. ZOPHREN [Concomitant]
  10. MOTILIUM [Concomitant]
  11. X-PREP [Concomitant]
  12. NEUPOGEN [Concomitant]
  13. INEXIUM [Concomitant]
  14. PLITICAN [Concomitant]
  15. POLARAMINE [Concomitant]
  16. VANCOMYCIN [Concomitant]
  17. TIENAM [Concomitant]
  18. TAZOCILLINE [Concomitant]

REACTIONS (2)
  - Palmar-plantar erythrodysaesthesia syndrome [Recovered/Resolved]
  - Febrile bone marrow aplasia [Recovered/Resolved]
